FAERS Safety Report 15786549 (Version 1)
Quarter: 2019Q1

REPORT INFORMATION
  Report Type: Report from Study
  Country: ES (occurrence: ES)
  Receive Date: 20190103
  Receipt Date: 20190103
  Transmission Date: 20190417
  Serious: Yes (Death, Hospitalization)
  Sender: FDA-Public Use
  Company Number: ES-MYLANLABS-2018M1097755

PATIENT
  Age: 81 Year
  Sex: Male

DRUGS (3)
  1. ENALAPRIL [Suspect]
     Active Substance: ENALAPRIL
     Indication: HYPERTENSION
     Dosage: 1-0-1 || DOSIS UNIDAD FRECUENCIA: 20 MG-MILIGRAMOS || DOSIS POR TOMA: 10 MG-MILIGRAMOS || N? TOMAS P
     Route: 048
     Dates: start: 2017
  2. AMOXICILLIN+CLAVULANIC ACID [Concomitant]
     Active Substance: AMOXICILLIN\CLAVULANIC ACID
     Indication: URINARY TRACT INFECTION
     Route: 065
     Dates: start: 20170422
  3. FUROSEMIDE. [Suspect]
     Active Substance: FUROSEMIDE
     Indication: PRODUCT USED FOR UNKNOWN INDICATION
     Dosage: 1-0-0 || DOSIS UNIDAD FRECUENCIA: 40 MG-MILIGRAMOS || DOSIS POR TOMA: 40 MG-MILIGRAMOS || N? TOMAS P
     Route: 048
     Dates: start: 2017

REACTIONS (1)
  - Acute kidney injury [Fatal]

NARRATIVE: CASE EVENT DATE: 20170426
